FAERS Safety Report 8464887-8 (Version None)
Quarter: 2012Q2

REPORT INFORMATION
  Report Type: 
  Country: None (occurrence: None)
  Receive Date: 20120626
  Receipt Date: 20120614
  Transmission Date: 20120825
  Serious: Yes (Hospitalization, Other)
  Sender: FDA-Public Use
  Company Number: US-ELI_LILLY_AND_COMPANY-US201205002020

PATIENT
  Sex: Female

DRUGS (3)
  1. PLAVIX [Concomitant]
  2. HUMALOG MIX 75/25 [Suspect]
     Indication: BLOOD GLUCOSE INCREASED
     Dosage: 18 U, EACH MORNING
     Dates: start: 20110601
  3. HUMALOG MIX 75/25 [Suspect]
     Dosage: 10 U, EACH EVENING

REACTIONS (9)
  - PURPURA [None]
  - BLOOD GLUCOSE DECREASED [None]
  - WHEEZING [None]
  - DRUG INEFFECTIVE [None]
  - MUSCULOSKELETAL CHEST PAIN [None]
  - RASH [None]
  - TRANSIENT ISCHAEMIC ATTACK [None]
  - BACK PAIN [None]
  - MUSCULOSKELETAL DISORDER [None]
